FAERS Safety Report 15936530 (Version 3)
Quarter: 2019Q1

REPORT INFORMATION
  Report Type: Spontaneous
  Country: US (occurrence: US)
  Receive Date: 20190208
  Receipt Date: 20190327
  Transmission Date: 20190417
  Serious: Yes (Other)
  Sender: FDA-Public Use
  Company Number: US-GLAXOSMITHKLINE-US2019019329

PATIENT
  Sex: Female

DRUGS (1)
  1. BENLYSTA [Suspect]
     Active Substance: BELIMUMAB
     Indication: PRODUCT USED FOR UNKNOWN INDICATION
     Dosage: 200 MG, WE
     Route: 058
     Dates: start: 201901

REACTIONS (17)
  - Hypoaesthesia [Recovered/Resolved]
  - Presyncope [Recovering/Resolving]
  - Fatigue [Unknown]
  - Systemic lupus erythematosus [Unknown]
  - Pain in extremity [Unknown]
  - Bedridden [Unknown]
  - Depressed mood [Unknown]
  - Dysphonia [Not Recovered/Not Resolved]
  - Chest discomfort [Recovering/Resolving]
  - Fibromyalgia [Unknown]
  - Pallor [Recovered/Resolved]
  - Adverse drug reaction [Unknown]
  - Pain [Unknown]
  - Crying [Unknown]
  - Muscle spasms [Not Recovered/Not Resolved]
  - Blood pressure decreased [Recovered/Resolved]
  - Injection site pain [Unknown]

NARRATIVE: CASE EVENT DATE: 20190202
